FAERS Safety Report 21720085 (Version 1)
Quarter: 2022Q4

REPORT INFORMATION
  Report Type: Spontaneous
  Country: GB (occurrence: GB)
  Receive Date: 20221213
  Receipt Date: 20221213
  Transmission Date: 20230112
  Serious: Yes (Disabling)
  Sender: FDA-Public Use
  Company Number: None

PATIENT
  Age: 23 Year
  Sex: Male
  Weight: 64 kg

DRUGS (1)
  1. FINASTERIDE [Suspect]
     Active Substance: FINASTERIDE
     Dosage: UNK

REACTIONS (8)
  - Muscle atrophy [Not Recovered/Not Resolved]
  - Breast pain [Not Recovered/Not Resolved]
  - Dry skin [Not Recovered/Not Resolved]
  - Weight increased [Not Recovered/Not Resolved]
  - Gingival recession [Not Recovered/Not Resolved]
  - Neuralgia [Not Recovered/Not Resolved]
  - Hyperaesthesia [Not Recovered/Not Resolved]
  - Feeling cold [Not Recovered/Not Resolved]
